FAERS Safety Report 21275571 (Version 1)
Quarter: 2022Q3

REPORT INFORMATION
  Report Type: Spontaneous
  Country: US (occurrence: US)
  Receive Date: 20220831
  Receipt Date: 20220831
  Transmission Date: 20221027
  Serious: No
  Sender: FDA-Public Use
  Company Number: US-SHIONOGI, INC-2022000726

PATIENT
  Age: 64 Year
  Sex: Female

DRUGS (9)
  1. FETROJA [Suspect]
     Active Substance: CEFIDEROCOL SULFATE TOSYLATE
     Indication: Pneumonia pseudomonal
     Dosage: 2 G, 8 HOUR
     Route: 042
  2. FETROJA [Suspect]
     Active Substance: CEFIDEROCOL SULFATE TOSYLATE
     Indication: Pseudomonal bacteraemia
  3. FETROJA [Suspect]
     Active Substance: CEFIDEROCOL SULFATE TOSYLATE
     Indication: Pathogen resistance
  4. POLYMYXIN B [Concomitant]
     Active Substance: POLYMYXIN B
     Indication: Pneumonia pseudomonal
     Route: 042
  5. POLYMYXIN B [Concomitant]
     Active Substance: POLYMYXIN B
     Indication: Pseudomonal bacteraemia
  6. POLYMYXIN B [Concomitant]
     Active Substance: POLYMYXIN B
     Indication: Pathogen resistance
  7. TOBRAMYCIN [Concomitant]
     Active Substance: TOBRAMYCIN
     Indication: Pneumonia pseudomonal
     Route: 042
  8. TOBRAMYCIN [Concomitant]
     Active Substance: TOBRAMYCIN
     Indication: Pseudomonal bacteraemia
  9. TOBRAMYCIN [Concomitant]
     Active Substance: TOBRAMYCIN
     Indication: Pathogen resistance

REACTIONS (2)
  - Prescribed overdose [Unknown]
  - No adverse event [Unknown]
